FAERS Safety Report 7107423-0 (Version None)
Quarter: 2010Q4

REPORT INFORMATION
  Report Type: 
  Country: None (occurrence: None)
  Receive Date: 20101105
  Receipt Date: 20101029
  Transmission Date: 20110411
  Serious: Yes (Life-Threatening)
  Sender: FDA-Public Use
  Company Number: 2010SP057835

PATIENT
  Age: 68 Year
  Sex: Female

DRUGS (16)
  1. REFLEX (MIRTAZAPINE /01293201/) [Suspect]
     Indication: DEPRESSION
     Dosage: 15 MG; QD; PO; 30 MG; QD;PO
     Route: 048
     Dates: start: 20100614, end: 20101003
  2. REFLEX (MIRTAZAPINE /01293201/) [Suspect]
     Indication: DEPRESSION
     Dosage: 15 MG; QD; PO; 30 MG; QD;PO
     Route: 048
     Dates: start: 20101004, end: 20101014
  3. ETIZOLAM (ETIZOLAM) [Suspect]
     Indication: DEPRESSION
     Dosage: 1.5 MG; QD;PO
  4. ZOLPIDEM TARTRATE [Suspect]
     Indication: DEPRESSION
     Dosage: 5 MG; QD;PO
     Route: 048
  5. LORAZEPAM [Suspect]
     Indication: ANXIETY
     Dosage: 0.5 MG; QD;PO
     Route: 048
  6. LORAZEPAM [Suspect]
     Indication: DEPRESSION
     Dosage: 0.5 MG; QD;PO
     Route: 048
  7. DIAZEPAM [Suspect]
     Indication: DEPRESSION
     Dosage: 4 MG; QD;PO
     Route: 048
     Dates: end: 20100614
  8. CLARITHROMYCIN [Concomitant]
  9. MEQUITAZINE [Concomitant]
  10. POVIDONE IODINE [Concomitant]
  11. VALSARTAN [Concomitant]
  12. SULPIRIDE [Concomitant]
  13. OCTOTIAMINE [Concomitant]
  14. QUETIAPINE FUMARATE [Concomitant]
  15. CARBOCISTEINE [Concomitant]
  16. DOGMATYL [Concomitant]

REACTIONS (10)
  - CONDITION AGGRAVATED [None]
  - CONSTIPATION [None]
  - DECREASED APPETITE [None]
  - DEPRESSION [None]
  - DRUG INTERACTION [None]
  - DYSURIA [None]
  - HEADACHE [None]
  - SEDATION [None]
  - SUICIDAL IDEATION [None]
  - WEIGHT DECREASED [None]
